FAERS Safety Report 8214056-1 (Version None)
Quarter: 2012Q1

REPORT INFORMATION
  Report Type: 
  Country: None (occurrence: None)
  Receive Date: 20120314
  Receipt Date: 20120314
  Transmission Date: 20120608
  Serious: Yes (Other)
  Sender: FDA-Public Use
  Company Number: None

PATIENT
  Age: 44 Year
  Sex: Female
  Weight: 80.2867 kg

DRUGS (5)
  1. VICODIN [Concomitant]
  2. REMICADE [Suspect]
     Indication: RHEUMATOID ARTHRITIS
     Dosage: 400MG 8WK IV
     Route: 042
     Dates: start: 20110923, end: 20120221
  3. PLAQUENIL [Concomitant]
  4. METHOTREXATE [Concomitant]
  5. MELOXICAM [Concomitant]

REACTIONS (1)
  - URTICARIA [None]
